FAERS Safety Report 19388998 (Version 1)
Quarter: 2021Q2

REPORT INFORMATION
  Report Type: Spontaneous
  Country: PT (occurrence: PT)
  Receive Date: 20210608
  Receipt Date: 20210608
  Transmission Date: 20210717
  Serious: Yes (Other)
  Sender: FDA-Public Use
  Company Number: PT-ACCORD-227370

PATIENT
  Age: 72 Year
  Sex: Female
  Weight: 64 kg

DRUGS (12)
  1. OXALIPLATIN. [Suspect]
     Active Substance: OXALIPLATIN
     Indication: COLON CANCER
     Route: 042
     Dates: start: 20210127
  2. METFORMINA [Concomitant]
     Active Substance: METFORMIN HYDROCHLORIDE
     Route: 048
  3. INSULATARD NPH HUMAN [Concomitant]
     Active Substance: INSULIN HUMAN
     Route: 058
  4. MONONITRATO DE ISOSSORBIDA [Concomitant]
     Route: 048
  5. OMEPRAZOLE. [Concomitant]
     Active Substance: OMEPRAZOLE
     Route: 048
  6. COSYRE [Concomitant]
     Route: 048
  7. AMLODIPINE [Concomitant]
     Active Substance: AMLODIPINE BESYLATE
     Route: 048
  8. ACETYLSALICYLATE CALCIUM/ACETYLSALICYLATE COPPER/ACETYLSALICYLATE LYSINE/ACETYLSALICYLATE SODIUM/ACE [Concomitant]
     Route: 048
  9. DEXAMETHASONE. [Concomitant]
     Active Substance: DEXAMETHASONE
  10. ABASAGLAR [Concomitant]
     Active Substance: INSULIN GLARGINE
     Route: 058
  11. ONDANSETRON [Concomitant]
     Active Substance: ONDANSETRON
  12. SIMVASTATIN. [Concomitant]
     Active Substance: SIMVASTATIN
     Route: 048

REACTIONS (3)
  - Throat irritation [Recovered/Resolved]
  - Erythema [Recovered/Resolved]
  - Pruritus [Recovered/Resolved]

NARRATIVE: CASE EVENT DATE: 20210224
